FAERS Safety Report 4367660-5 (Version None)
Quarter: 2004Q2

REPORT INFORMATION
  Report Type: 
  Country: None (occurrence: None)
  Receive Date: 20040601
  Receipt Date: 20040519
  Transmission Date: 20050107
  Serious: Yes (Hospitalization, Disabling, Other)
  Sender: FDA-Public Use
  Company Number: US-GLAXOSMITHKLINE-A0511472A

PATIENT
  Age: 51 Year
  Sex: Female

DRUGS (2)
  1. LOTRONEX [Suspect]
     Indication: IRRITABLE BOWEL SYNDROME
     Dosage: 1MG TWICE PER DAY
     Route: 048
     Dates: start: 20031001, end: 20040515
  2. PREMARIN [Concomitant]

REACTIONS (2)
  - BACTERIA STOOL IDENTIFIED [None]
  - COLITIS ISCHAEMIC [None]
